FAERS Safety Report 19193927 (Version 1)
Quarter: 2021Q2

REPORT INFORMATION
  Report Type: Spontaneous
  Country: US (occurrence: US)
  Receive Date: 20210429
  Receipt Date: 20210429
  Transmission Date: 20210717
  Serious: Yes (Hospitalization, Other)
  Sender: FDA-Public Use
  Company Number: None

PATIENT
  Age: 48 Year
  Sex: Male
  Weight: 93 kg

DRUGS (1)
  1. YESCARTA [Suspect]
     Active Substance: AXICABTAGENE CILOLEUCEL
     Indication: DIFFUSE LARGE B-CELL LYMPHOMA
     Dosage: ?          OTHER FREQUENCY:ONCE;?
     Route: 042
     Dates: start: 20201210, end: 20201210

REACTIONS (11)
  - Pleural effusion [None]
  - Pelvic mass [None]
  - Immune effector cell-associated neurotoxicity syndrome [None]
  - Supraventricular tachycardia [None]
  - Oedema peripheral [None]
  - Dyspnoea [None]
  - Pancytopenia [None]
  - Cytokine release syndrome [None]
  - Pulmonary mass [None]
  - Scrotal oedema [None]
  - Diffuse large B-cell lymphoma [None]

NARRATIVE: CASE EVENT DATE: 20201212
